FAERS Safety Report 4668289-1 (Version None)
Quarter: 2005Q2

REPORT INFORMATION
  Report Type: 
  Country: None (occurrence: None)
  Receive Date: 20050523
  Receipt Date: 20050210
  Transmission Date: 20051028
  Serious: Yes (Hospitalization)
  Sender: FDA-Public Use
  Company Number: PHBS2005FI02178

PATIENT
  Age: 57 Year
  Sex: Male

DRUGS (9)
  1. AREDIA [Suspect]
     Indication: MULTIPLE MYELOMA
     Dosage: 90 MG, QMO
     Dates: start: 20010613, end: 20020601
  2. ZOMETA [Suspect]
     Indication: MULTIPLE MYELOMA
     Dosage: 4 MG, QMO
     Route: 042
     Dates: start: 20020717, end: 20040406
  3. APURIN [Concomitant]
     Dosage: UNK, UNK
     Route: 048
     Dates: start: 20010701, end: 20011001
  4. VINCRISTINE [Concomitant]
     Indication: MULTIPLE MYELOMA
     Dosage: 0.4 MG/DAY, 4 DAYS/MONTH
     Route: 065
     Dates: start: 20010709, end: 20011113
  5. DEXAMETHASONE [Concomitant]
     Indication: MULTIPLE MYELOMA
     Dosage: 20 MG/DAY, 4 DAYS/MONTH
     Route: 065
     Dates: start: 20010709, end: 20011113
  6. DEXAMETHASONE [Concomitant]
     Dosage: 39 MG QID/MONTH
     Route: 065
     Dates: start: 20021101, end: 20031001
  7. DOXORUBICIN HCL [Concomitant]
     Indication: MULTIPLE MYELOMA
     Dosage: 40 MG TID, 4 DAYS/MONTH
     Route: 065
     Dates: start: 20010709, end: 20011113
  8. THALIDOMIDE [Concomitant]
     Indication: MULTIPLE MYELOMA
     Dosage: 100-200 MG/D
     Dates: start: 20021101, end: 20031201
  9. KALCIPOS-D [Concomitant]
     Indication: MULTIPLE MYELOMA
     Dosage: 1000 MG/D
     Route: 065
     Dates: start: 20021001

REACTIONS (5)
  - BONE DISORDER [None]
  - DIPLOPIA [None]
  - OSTEOMYELITIS [None]
  - PARAESTHESIA [None]
  - TOOTH EXTRACTION [None]
